FAERS Safety Report 9921918 (Version 1)
Quarter: 2014Q1

REPORT INFORMATION
  Report Type: Spontaneous
  Country: IE (occurrence: IE)
  Receive Date: 20140225
  Receipt Date: 20140225
  Transmission Date: 20141002
  Serious: Yes (Other)
  Sender: FDA-Public Use
  Company Number: IE-WATSON-2014-02837

PATIENT
  Age: 65 Year
  Sex: Male

DRUGS (2)
  1. TRANEXAMIC ACID (UNKNOWN) [Suspect]
     Indication: THROMBOSIS PROPHYLAXIS
     Dosage: 1 G, SINGLE
     Route: 042
  2. TINZAPARIN [Concomitant]
     Indication: THROMBOSIS PROPHYLAXIS
     Dosage: 4500 IU, DAILY
     Route: 058

REACTIONS (2)
  - Cerebral infarction [Recovered/Resolved with Sequelae]
  - Pulmonary embolism [Recovered/Resolved]
